FAERS Safety Report 6551704-6 (Version None)
Quarter: 2010Q1

REPORT INFORMATION
  Report Type: 
  Country: None (occurrence: None)
  Receive Date: 20100120
  Receipt Date: 20100105
  Transmission Date: 20100710
  Serious: Yes (Death)
  Sender: FDA-Public Use
  Company Number: CERZ-1001092

PATIENT
  Age: 50 Year
  Sex: Male
  Weight: 64 kg

DRUGS (6)
  1. CEREZYME [Suspect]
     Indication: GAUCHER'S DISEASE
     Dosage: 4000 U, Q2W, INTRAVENOUS
     Route: 042
     Dates: start: 19920601, end: 20091119
  2. OMEPRAZOLE [Concomitant]
  3. DUROFERON DEPOT (DUROFERON DEPOT) [Concomitant]
  4. LASIX RETARD (LASIX RETARD) [Concomitant]
  5. BENZYLPENICILLIN (BENZYLPENICILLIN) [Concomitant]
  6. LAKTULOSDR (LAKTULOSDR) [Concomitant]

REACTIONS (1)
  - OESOPHAGEAL CARCINOMA [None]
